FAERS Safety Report 17546033 (Version 1)
Quarter: 2020Q1

REPORT INFORMATION
  Report Type: Spontaneous
  Country: US (occurrence: US)
  Receive Date: 20200316
  Receipt Date: 20200316
  Transmission Date: 20200409
  Serious: No
  Sender: FDA-Public Use
  Company Number: None

PATIENT
  Age: 34 Year
  Sex: Male
  Weight: 67.5 kg

DRUGS (1)
  1. PURELL COTTONY SOFT [Suspect]
     Active Substance: ALCOHOL
     Indication: PERSONAL HYGIENE
     Dates: start: 20200314, end: 20200315

REACTIONS (2)
  - Burning sensation [None]
  - Rash erythematous [None]

NARRATIVE: CASE EVENT DATE: 20200315
